FAERS Safety Report 15702196 (Version 3)
Quarter: 2019Q2

REPORT INFORMATION
  Report Type: Report from Study
  Country: None (occurrence: CH)
  Receive Date: 20181209
  Receipt Date: 20190624
  Transmission Date: 20190711
  Serious: Yes (Hospitalization)
  Sender: FDA-Public Use
  Company Number: CH-ABBVIE-18S-151-2577484-00

PATIENT
  Age: 71 Year
  Sex: Male

DRUGS (8)
  1. DUODOPA [Suspect]
     Active Substance: CARBIDOPA\LEVODOPA
     Dosage: 24H THERAPY, MD 7ML, CR DAY 5.3ML/H, CR NIGHT 4.6 ML/H, ED 2ML
     Route: 050
     Dates: start: 20180103, end: 20180228
  2. DUODOPA [Suspect]
     Active Substance: CARBIDOPA\LEVODOPA
     Indication: PARKINSON^S DISEASE
     Route: 050
     Dates: start: 20160215, end: 20180103
  3. TEMESTA [Concomitant]
     Indication: PRODUCT USED FOR UNKNOWN INDICATION
  4. DUODOPA [Suspect]
     Active Substance: CARBIDOPA\LEVODOPA
     Dosage: MD 5.2ML, CR DAY 5.1ML/H, CR NIGHT 4.4 ML/H, ED 3.5ML BLOCKING TIME 45MIN
     Route: 050
     Dates: start: 2018, end: 20181203
  5. DUODOPA [Suspect]
     Active Substance: CARBIDOPA\LEVODOPA
     Dosage: MD 7 ML, CRD 5.1ML,  CRN NIGHT 4.4 ML/H, ED 2 ML BLOCKING TIME 20 HOURS
     Route: 050
     Dates: start: 20181203, end: 2018
  6. DUODOPA [Suspect]
     Active Substance: CARBIDOPA\LEVODOPA
     Dosage: 24H THERAPY MD 7ML, CR DAY 5.1ML/H, CR NIGHT 4.4 ML/H, ED 2ML
     Route: 050
     Dates: start: 20180228, end: 2018
  7. DUODOPA [Suspect]
     Active Substance: CARBIDOPA\LEVODOPA
     Dosage: 2 CASSETTES / 24 HOURS
     Route: 050
     Dates: start: 2018
  8. DUODOPA [Suspect]
     Active Substance: CARBIDOPA\LEVODOPA
     Dosage: CRD 5.1ML,  CRN NIGHT 4.4 ML/H, ED 2 ML BLOCKING TIME 20 HOURS
     Route: 050
     Dates: start: 20181203, end: 20181203

REACTIONS (11)
  - Device programming error [Recovered/Resolved]
  - Device dislocation [Recovered/Resolved]
  - Overdose [Unknown]
  - Device loosening [Recovered/Resolved]
  - Confusional state [Unknown]
  - Spousal abuse [Recovered/Resolved]
  - Memory impairment [Unknown]
  - Product dose omission [Unknown]
  - Freezing phenomenon [Unknown]
  - Stoma site hypergranulation [Unknown]
  - Psychogenic tremor [Unknown]

NARRATIVE: CASE EVENT DATE: 20181030
